FAERS Safety Report 9730316 (Version 2)
Quarter: 2016Q1

REPORT INFORMATION
  Report Type: Report from Study
  Country: US (occurrence: US)
  Receive Date: 20131204
  Receipt Date: 20160302
  Transmission Date: 20160526
  Serious: Yes (Other)
  Sender: FDA-Public Use
  Company Number: US-ROCHE-1310918

PATIENT
  Sex: Male

DRUGS (7)
  1. CIPROFLOXACIN. [Concomitant]
     Active Substance: CIPROFLOXACIN
     Dosage: 5
     Route: 065
  2. MORPHINE [Concomitant]
     Active Substance: MORPHINE
     Route: 065
  3. PANTOPRAZOLE [Concomitant]
     Active Substance: PANTOPRAZOLE SODIUM
  4. FENTANYL. [Concomitant]
     Active Substance: FENTANYL
     Route: 065
  5. ACTIVASE [Suspect]
     Active Substance: ALTEPLASE
     Indication: PULMONARY EMBOLISM
     Route: 065
     Dates: start: 20131122, end: 20131122
  6. NICOTINE TRANSDERMAL PATCH [Concomitant]
     Active Substance: NICOTINE
     Route: 065
  7. HYDROCORTISONE. [Concomitant]
     Active Substance: HYDROCORTISONE

REACTIONS (7)
  - Fall [Unknown]
  - Depression [Unknown]
  - Pain in extremity [Unknown]
  - Skin ulcer [Unknown]
  - Chest pain [Unknown]
  - Excoriation [Unknown]
  - Insomnia [Unknown]
